FAERS Safety Report 7986772-8 (Version None)
Quarter: 2011Q4

REPORT INFORMATION
  Report Type: 
  Country: None (occurrence: None)
  Receive Date: 20111216
  Receipt Date: 20111208
  Transmission Date: 20120403
  Serious: Yes (Death, Life-Threatening, Hospitalization, Other)
  Sender: FDA-Public Use
  Company Number: DE-TEVA-313070GER

PATIENT
  Age: 64 Year
  Sex: Male
  Weight: 92 kg

DRUGS (4)
  1. METOCLOPRAMIDE HYDROCHLORIDE [Suspect]
     Route: 048
     Dates: start: 20110701, end: 20110801
  2. LOPERAMIDE [Suspect]
     Indication: DIARRHOEA
     Route: 048
     Dates: start: 20110701, end: 20110830
  3. FLUOROURACIL [Suspect]
     Indication: RECTAL CANCER
     Dosage: 450 MILLIGRAM;
     Route: 042
     Dates: start: 20110712, end: 20110808
  4. NOVAMINSULFON-RATIOPHARM 500 MG/ML [Suspect]
     Route: 048
     Dates: start: 20110701, end: 20110801

REACTIONS (2)
  - SEPSIS [None]
  - RENAL FAILURE ACUTE [None]
